FAERS Safety Report 6461791-1 (Version None)
Quarter: 2009Q4

REPORT INFORMATION
  Report Type: 
  Country: None (occurrence: None)
  Receive Date: 20091130
  Receipt Date: 20091118
  Transmission Date: 20100525
  Serious: Yes (Hospitalization, Other)
  Sender: FDA-Public Use
  Company Number: PHEH2009US09200

PATIENT
  Sex: Female
  Weight: 80.726 kg

DRUGS (1)
  1. VIVELLE-DOT [Suspect]
     Indication: HORMONE REPLACEMENT THERAPY
     Dosage: 0.05 UNK, TWICE WEEKLY
     Route: 062
     Dates: start: 20081201, end: 20090501

REACTIONS (3)
  - COLITIS ISCHAEMIC [None]
  - SURGERY [None]
  - WHITE BLOOD CELL COUNT INCREASED [None]
